FAERS Safety Report 16116592 (Version 1)
Quarter: 2019Q1

REPORT INFORMATION
  Report Type: Spontaneous
  Country: GB (occurrence: GB)
  Receive Date: 20190326
  Receipt Date: 20190326
  Transmission Date: 20190418
  Serious: Yes (Other)
  Sender: FDA-Public Use
  Company Number: GB-ACCORD-114330

PATIENT
  Age: 45 Year
  Sex: Female
  Weight: 55 kg

DRUGS (2)
  1. RAMIPRIL. [Suspect]
     Active Substance: RAMIPRIL
     Indication: PRODUCT USED FOR UNKNOWN INDICATION
     Dates: start: 20180913
  2. NORIDAY [Concomitant]
     Active Substance: MESTRANOL\NORETHINDRONE
     Dates: start: 20181019

REACTIONS (1)
  - Raynaud^s phenomenon [Unknown]

NARRATIVE: CASE EVENT DATE: 20181123
